FAERS Safety Report 12523366 (Version 1)
Quarter: 2016Q3

REPORT INFORMATION
  Report Type: Report from Study
  Country: US (occurrence: US)
  Receive Date: 20160702
  Receipt Date: 20160702
  Transmission Date: 20161109
  Serious: Yes (Other)
  Sender: FDA-Public Use
  Company Number: US-ABBVIE-16K-163-1653675-00

PATIENT
  Age: 53 Year
  Sex: Male
  Weight: 83.99 kg

DRUGS (1)
  1. HUMIRA [Suspect]
     Active Substance: ADALIMUMAB
     Indication: CROHN^S DISEASE
     Route: 058
     Dates: start: 201602

REACTIONS (10)
  - Fall [Unknown]
  - Ankle fracture [Recovering/Resolving]
  - Weight decreased [Recovered/Resolved]
  - Joint dislocation [Recovering/Resolving]
  - Cartilage injury [Recovering/Resolving]
  - Contusion [Recovering/Resolving]
  - Fall [Unknown]
  - Ear infection [Recovered/Resolved]
  - Post-traumatic pain [Unknown]
  - Joint injury [Unknown]

NARRATIVE: CASE EVENT DATE: 2016
